FAERS Safety Report 4266847-X (Version None)
Quarter: 2004Q1

REPORT INFORMATION
  Report Type: 
  Country: None (occurrence: None)
  Receive Date: 20040108
  Receipt Date: 20040108
  Transmission Date: 20041129
  Serious: No
  Sender: FDA-Public Use
  Company Number: None

PATIENT
  Age: 2 Year
  Sex: Male
  Weight: 79.3795 kg

DRUGS (6)
  1. EFFEXOR [Suspect]
     Indication: ANXIETY
     Dosage: 112.5 MG 75 MG
     Dates: start: 20030601, end: 20031101
  2. EFFEXOR [Suspect]
     Indication: ATTENTION DEFICIT/HYPERACTIVITY DISORDER
     Dosage: 112.5 MG 75 MG
     Dates: start: 20030601, end: 20031101
  3. EFFEXOR [Suspect]
     Indication: DEPRESSION
     Dosage: 112.5 MG 75 MG
     Dates: start: 20030601, end: 20031101
  4. EFFEXOR [Suspect]
     Indication: ANXIETY
     Dosage: 112.5 MG 75 MG
     Dates: start: 20031102, end: 20040102
  5. EFFEXOR [Suspect]
     Indication: ATTENTION DEFICIT/HYPERACTIVITY DISORDER
     Dosage: 112.5 MG 75 MG
     Dates: start: 20031102, end: 20040102
  6. EFFEXOR [Suspect]
     Indication: DEPRESSION
     Dosage: 112.5 MG 75 MG
     Dates: start: 20031102, end: 20040102

REACTIONS (4)
  - ACTIVITIES OF DAILY LIVING IMPAIRED [None]
  - DIZZINESS [None]
  - NAUSEA [None]
  - NERVOUS SYSTEM DISORDER [None]
